FAERS Safety Report 11599651 (Version 1)
Quarter: 2015Q3

REPORT INFORMATION
  Report Type: Spontaneous
  Country: US (occurrence: US)
  Receive Date: 20150916
  Receipt Date: 20150916
  Transmission Date: 20151125
  Serious: No
  Sender: FDA-Public Use
  Company Number: US-ELI_LILLY_AND_COMPANY-US200710002636

PATIENT
  Age: 66 Year
  Sex: Male
  Weight: 84.35 kg

DRUGS (4)
  1. CALCIUM CARBONATE. [Concomitant]
     Active Substance: CALCIUM CARBONATE
     Indication: OSTEOPOROSIS
     Dosage: 500 MG, DAILY (1/D)
  2. NEXIUM [Concomitant]
     Active Substance: ESOMEPRAZOLE MAGNESIUM
  3. FLOMAX [Concomitant]
     Active Substance: TAMSULOSIN HYDROCHLORIDE
  4. FORTEO [Suspect]
     Active Substance: TERIPARATIDE
     Indication: OSTEOPENIA
     Dates: start: 200705

REACTIONS (1)
  - White blood cell count decreased [Not Recovered/Not Resolved]

NARRATIVE: CASE EVENT DATE: 20070910
